FAERS Safety Report 21568403 (Version 2)
Quarter: 2022Q4

REPORT INFORMATION
  Report Type: Spontaneous
  Country: CN (occurrence: CN)
  Receive Date: 20221108
  Receipt Date: 20221117
  Transmission Date: 20230112
  Serious: Yes (Other)
  Sender: FDA-Public Use
  Company Number: CN-BAYER-2022A152395

PATIENT
  Age: 57 Year
  Sex: Male

DRUGS (3)
  1. NEXAVAR [Suspect]
     Active Substance: SORAFENIB
     Indication: Hepatic cancer metastatic
     Dosage: 400 MG, QD
     Route: 048
     Dates: start: 201703, end: 201705
  2. NEXAVAR [Suspect]
     Active Substance: SORAFENIB
     Indication: Metastases to lung
  3. STIVARGA [Suspect]
     Active Substance: REGORAFENIB
     Indication: Hepatic cancer
     Dosage: 160 MG, QD
     Route: 048
     Dates: start: 201705

REACTIONS (5)
  - Hepatic cancer [None]
  - Metastases to lung [None]
  - Hypertension [None]
  - Hyperammonaemia [None]
  - Diarrhoea [None]

NARRATIVE: CASE EVENT DATE: 20170501
